FAERS Safety Report 19098925 (Version 1)
Quarter: 2021Q2

REPORT INFORMATION
  Report Type: Spontaneous
  Country: US (occurrence: US)
  Receive Date: 20210406
  Receipt Date: 20210406
  Transmission Date: 20210717
  Serious: Yes (Life-Threatening, Hospitalization, Other)
  Sender: FDA-Public Use
  Company Number: US-UCBSA-2021015576

PATIENT
  Age: 62 Year
  Sex: Male
  Weight: 82.4 kg

DRUGS (8)
  1. DABRAFENIB [Suspect]
     Active Substance: DABRAFENIB
     Indication: NEOPLASM
  2. TRAMETINIB [Suspect]
     Active Substance: TRAMETINIB
     Indication: NEOPLASM
  3. NAVITOCLAX [Suspect]
     Active Substance: NAVITOCLAX
     Indication: BRAF GENE MUTATION
     Dosage: 225 MILLIGRAM, ONCE DAILY (QD)
     Route: 048
     Dates: start: 20200319
  4. PEMBROLIZUMAB. [Concomitant]
     Active Substance: PEMBROLIZUMAB
     Indication: MALIGNANT MELANOMA
     Dosage: UNK
  5. TRAMETINIB [Suspect]
     Active Substance: TRAMETINIB
     Indication: BRAF GENE MUTATION
     Dosage: 2 MILLIGRAM, ONCE DAILY (QD)
     Route: 048
     Dates: start: 20200326, end: 20200519
  6. DABRAFENIB [Suspect]
     Active Substance: DABRAFENIB
     Indication: BRAF GENE MUTATION
     Dosage: 150 MILLIGRAM, 2X/DAY (BID)
     Route: 048
     Dates: start: 20200326, end: 20200519
  7. KEPPRA [Suspect]
     Active Substance: LEVETIRACETAM
     Indication: PRODUCT USED FOR UNKNOWN INDICATION
     Dosage: UNK
  8. NAVITOCLAX [Suspect]
     Active Substance: NAVITOCLAX
     Indication: NEOPLASM

REACTIONS (14)
  - Large intestine perforation [Recovering/Resolving]
  - Seizure [Recovering/Resolving]
  - Sepsis [Unknown]
  - Peritonitis [Unknown]
  - Hypoxia [Recovered/Resolved]
  - Confusional state [Recovered/Resolved]
  - Product dose omission issue [Unknown]
  - Syncope [Recovered/Resolved]
  - Generalised tonic-clonic seizure [Unknown]
  - Vomiting [Recovered/Resolved]
  - Sinus bradycardia [Recovered/Resolved]
  - Electrocardiogram QT prolonged [Recovering/Resolving]
  - Decreased appetite [Unknown]
  - Malignant melanoma [Unknown]

NARRATIVE: CASE EVENT DATE: 201907
